FAERS Safety Report 8440409-2 (Version None)
Quarter: 2012Q2

REPORT INFORMATION
  Report Type: 
  Country: None (occurrence: None)
  Receive Date: 20120615
  Receipt Date: 20120604
  Transmission Date: 20120825
  Serious: Yes (Other)
  Sender: FDA-Public Use
  Company Number: US-FRI-1000026768

PATIENT
  Sex: Female

DRUGS (15)
  1. EXFORGE [Concomitant]
     Indication: HYPERTENSION
  2. AVELOX [Suspect]
     Indication: PNEUMONIA
  3. PROTONIX [Concomitant]
     Indication: GASTROOESOPHAGEAL REFLUX DISEASE
     Dosage: 80 MG
  4. XANAX [Concomitant]
     Indication: ANXIETY
     Dosage: AS NEEDED
  5. VIIBRYD [Suspect]
     Indication: DEPRESSION
     Dosage: 10 MG
     Route: 048
     Dates: start: 20110829, end: 20110101
  6. CIPROFLOXACIN HCL [Suspect]
     Dosage: 1000 MG
  7. VIIBRYD [Suspect]
     Dosage: 20 MG
     Route: 048
     Dates: start: 20110101, end: 20110101
  8. VYVANSE [Concomitant]
     Dosage: 20 MG
  9. VIIBRYD [Suspect]
     Dosage: 40 MG
     Route: 048
     Dates: start: 20110101
  10. VITAMIN D [Concomitant]
     Dosage: 10,000 IU
  11. DEPLIN [Concomitant]
     Indication: OSTEOPOROSIS
     Dosage: 7.5 MG
  12. INDERAL [Concomitant]
     Dosage: 10 MG
  13. IMITREX [Concomitant]
     Indication: MIGRAINE
     Dosage: AS NEEDED
  14. AMBIEN [Concomitant]
     Indication: INSOMNIA
  15. DOXEPIN [Concomitant]
     Dosage: 75 MG

REACTIONS (6)
  - PNEUMONIA [None]
  - DRUG INTERACTION [None]
  - LOSS OF CONSCIOUSNESS [None]
  - ANAPHYLACTIC REACTION [None]
  - ASPIRATION [None]
  - DIARRHOEA [None]
